FAERS Safety Report 13666551 (Version 1)
Quarter: 2017Q2

REPORT INFORMATION
  Report Type: Spontaneous
  Country: US (occurrence: US)
  Receive Date: 20170619
  Receipt Date: 20170619
  Transmission Date: 20170830
  Serious: No
  Sender: FDA-Public Use
  Company Number: US-ROCHE-624816

PATIENT
  Sex: Female

DRUGS (5)
  1. ISOLEUCINE [Concomitant]
     Active Substance: ISOLEUCINE
     Route: 065
  2. GLUTAMINE [Concomitant]
     Active Substance: GLUTAMINE
     Route: 065
  3. XELODA [Suspect]
     Active Substance: CAPECITABINE
     Indication: PRODUCT USED FOR UNKNOWN INDICATION
     Route: 065
  4. VALINE [Concomitant]
     Active Substance: VALINE
     Route: 065
  5. LEUCINE [Concomitant]
     Active Substance: LEUCINE
     Route: 065

REACTIONS (3)
  - Skin exfoliation [Not Recovered/Not Resolved]
  - Myalgia [Not Recovered/Not Resolved]
  - Fatigue [Not Recovered/Not Resolved]
